FAERS Safety Report 8713942 (Version 4)
Quarter: 2012Q4

REPORT INFORMATION
  Report Type: Report from Study
  Country: US (occurrence: None)
  Receive Date: 20120724
  Receipt Date: 20121001
  Transmission Date: 20130627
  Serious: Yes (Hospitalization, Other)
  Sender: FDA-Public Use
  Company Number: 2012HGS-003801

PATIENT
  Age: 54 Year
  Sex: Female
  Weight: 63.9 kg

DRUGS (13)
  1. BELIMUMAB [Suspect]
     Indication: SYSTEMIC LUPUS ERYTHEMATOSUS
     Dosage: 1 mg/kg, 1 in 28 D, Intravenous drip
     Dates: start: 20091007
  2. BELIMUMAB [Suspect]
     Indication: SYSTEMIC LUPUS ERYTHEMATOSUS
     Dosage: 10 mg/kg, 1 in 28 D, Intravenous drip
     Dates: start: 20110706
  3. NEXIUM [Concomitant]
  4. VENTOLIN HFA (SALBUTAMOL SULFATE) (SALBUTAMOL SULFATE) [Concomitant]
  5. NORVASC [Concomitant]
  6. PLAVIX (CLOPIDOGREL BISULFATE) (CLOPIDOGREL BISULFATE) [Concomitant]
  7. DEXEDRINE (DEXAMFETAMINE SULFATE) (DEXAMFETAMINE SULFATE) [Concomitant]
  8. PREMARIN (ESTROGENS CONJUGATED) (ESTROGENS CONJUGATED) [Concomitant]
  9. HYDROCORTISONE CREAM (HYDROCORTISONE) (HYDROCORTISONE) [Concomitant]
  10. PLAQUENIL (HYDROXYCHLOROQUINE PHOSPHATE) (HYDROXYCHLOROQUINE PHOSPHATE) [Concomitant]
  11. SENNA-S (COLOXYL WITH SENNA) (SENNOSIDE A+B, DOCUSATE SODIUM) [Concomitant]
  12. IMITREX (SUMATRIPTAN) (SUMATRIPTAN) [Concomitant]
  13. ADVAIR (SERETIDE) (FLUTICASONE PROPIONATE, SALMETEROL XINAFOATE) [Concomitant]

REACTIONS (13)
  - Pleural effusion [None]
  - Dizziness [None]
  - Tremor [None]
  - Feeling hot [None]
  - Chest pain [None]
  - Dyspnoea [None]
  - Hyperhidrosis [None]
  - Nausea [None]
  - Pericarditis lupus [None]
  - Hypotension [None]
  - Urine output decreased [None]
  - Infection [None]
  - Respiratory tract infection [None]
